FAERS Safety Report 5258004-5 (Version None)
Quarter: 2007Q1

REPORT INFORMATION
  Report Type: 
  Country: None (occurrence: None)
  Receive Date: 20070307
  Receipt Date: 20061206
  Transmission Date: 20070707
  Serious: No
  Sender: FDA-Public Use
  Company Number: US-GLAXOSMITHKLINE-A0630621A

PATIENT
  Age: 41 Year
  Sex: Female

DRUGS (2)
  1. REQUIP [Suspect]
     Dosage: 1MG PER DAY
     Route: 048
  2. NO CONCURRENT MEDICATION [Concomitant]

REACTIONS (1)
  - SENSATION OF HEAVINESS [None]
